FAERS Safety Report 8200308-8 (Version None)
Quarter: 2012Q1

REPORT INFORMATION
  Report Type: 
  Country: None (occurrence: None)
  Receive Date: 20120309
  Receipt Date: 20120309
  Transmission Date: 20120608
  Serious: Yes (Other)
  Sender: FDA-Public Use
  Company Number: None

PATIENT
  Sex: Female
  Weight: 49.8957 kg

DRUGS (5)
  1. METRONIDAZOLE [Concomitant]
  2. CEFDINIR [Suspect]
     Indication: GINGIVAL INFECTION
     Dosage: 300MG 2X DAY ORAL
     Route: 048
     Dates: start: 20111004, end: 20111019
  3. CEFDINIR [Suspect]
     Indication: SINUSITIS
     Dosage: 300MG 2X DAY ORAL
     Route: 048
     Dates: start: 20111004, end: 20111019
  4. CEFDINIR [Suspect]
     Indication: GINGIVAL INFECTION
     Dosage: 300MG 2X DAY ORAL
     Route: 048
     Dates: start: 20111024, end: 20111108
  5. CEFDINIR [Suspect]
     Indication: SINUSITIS
     Dosage: 300MG 2X DAY ORAL
     Route: 048
     Dates: start: 20111024, end: 20111108

REACTIONS (3)
  - CLOSTRIDIUM DIFFICILE COLITIS [None]
  - MALAISE [None]
  - PAIN [None]
